FAERS Safety Report 19508251 (Version 1)
Quarter: 2021Q3

REPORT INFORMATION
  Report Type: Spontaneous
  Country: CA (occurrence: CA)
  Receive Date: 20210708
  Receipt Date: 20210708
  Transmission Date: 20211014
  Serious: Yes (Death, Hospitalization)
  Sender: FDA-Public Use
  Company Number: CA-LUPIN PHARMACEUTICALS INC.-2021-11279

PATIENT

DRUGS (4)
  1. CEFTOBIPROLE [Suspect]
     Active Substance: CEFTOBIPROLE
     Indication: PNEUMONIA STAPHYLOCOCCAL
     Dosage: 500 MILLIGRAM, TID
     Route: 042
  2. VANCOMYCIN [Suspect]
     Active Substance: VANCOMYCIN
     Indication: PNEUMONIA STAPHYLOCOCCAL
     Dosage: UNK
     Route: 065
  3. VANCOMYCIN [Suspect]
     Active Substance: VANCOMYCIN
     Indication: STAPHYLOCOCCAL BACTERAEMIA
  4. CEFTOBIPROLE [Suspect]
     Active Substance: CEFTOBIPROLE
     Indication: STAPHYLOCOCCAL BACTERAEMIA

REACTIONS (1)
  - Treatment failure [Fatal]
